FAERS Safety Report 16359256 (Version 2)
Quarter: 2019Q3

REPORT INFORMATION
  Report Type: Spontaneous
  Country: RO (occurrence: RO)
  Receive Date: 20190528
  Receipt Date: 20190806
  Transmission Date: 20191004
  Serious: Yes (Death, Other)
  Sender: FDA-Public Use
  Company Number: RO-BRISTOL-MYERS SQUIBB COMPANY-BMS-2019-050639

PATIENT
  Age: 70 Year
  Sex: Male
  Weight: 82 kg

DRUGS (1)
  1. OPDIVO [Suspect]
     Active Substance: NIVOLUMAB
     Indication: MALIGNANT MELANOMA
     Dosage: 240 MILLIGRAM, Q2WK
     Route: 042
     Dates: start: 20180828, end: 20190507

REACTIONS (6)
  - Death [Fatal]
  - Decreased appetite [Unknown]
  - Blood corticotrophin increased [Unknown]
  - Asthenia [Unknown]
  - Adrenal insufficiency [Unknown]
  - Tri-iodothyronine decreased [Unknown]

NARRATIVE: CASE EVENT DATE: 20190513
